FAERS Safety Report 16065917 (Version 2)
Quarter: 2019Q1

REPORT INFORMATION
  Report Type: Spontaneous
  Country: US (occurrence: US)
  Receive Date: 20190313
  Receipt Date: 20190313
  Transmission Date: 20190418
  Serious: No
  Sender: FDA-Public Use
  Company Number: US-CELGENEUS-USA-20190302354

PATIENT
  Sex: Female

DRUGS (1)
  1. OTEZLA [Suspect]
     Active Substance: APREMILAST
     Indication: PSORIASIS
     Dosage: 60 MILLIGRAM
     Route: 048
     Dates: start: 20181224, end: 20190304

REACTIONS (6)
  - Tension headache [Unknown]
  - Wrong technique in product usage process [Unknown]
  - Psoriasis [Unknown]
  - Product dose omission [Unknown]
  - Headache [Unknown]
  - Papule [Unknown]

NARRATIVE: CASE EVENT DATE: 2019
